FAERS Safety Report 6809007-8 (Version None)
Quarter: 2010Q2

REPORT INFORMATION
  Report Type: 
  Country: None (occurrence: None)
  Receive Date: 20100630
  Receipt Date: 20091216
  Transmission Date: 20101027
  Serious: No
  Sender: FDA-Public Use
  Company Number: US-PFIZER INC-2009281691

PATIENT
  Sex: Female

DRUGS (5)
  1. XANAX [Suspect]
     Indication: ANXIETY
     Dosage: 0.25 MG, 3X/DAY
     Dates: start: 20080701
  2. XANAX [Suspect]
     Indication: PANIC ATTACK
  3. XANAX [Suspect]
     Indication: SLEEP DISORDER
  4. PRILOSEC [Concomitant]
     Dosage: UNK
  5. ALLEGRA [Concomitant]
     Dosage: UNK

REACTIONS (1)
  - DRUG INEFFECTIVE [None]
